FAERS Safety Report 16363244 (Version 1)
Quarter: 2019Q3

REPORT INFORMATION
  Report Type: Spontaneous
  Country: US (occurrence: US)
  Receive Date: 20190527
  Receipt Date: 20190527
  Transmission Date: 20191004
  Serious: No
  Sender: FDA-Public Use
  Company Number: None

PATIENT
  Age: 56 Year
  Sex: Female
  Weight: 59.85 kg

DRUGS (2)
  1. OSELTAMIVIR PHOSPHATE CAPSULE. [Suspect]
     Active Substance: OSELTAMIVIR PHOSPHATE
     Indication: INFLUENZA
     Route: 048
     Dates: start: 20190315, end: 20190316
  2. VITAMIN D2 [Concomitant]
     Active Substance: ERGOCALCIFEROL

REACTIONS (6)
  - Dysphonia [None]
  - Rash [None]
  - Headache [None]
  - Hallucination [None]
  - Insomnia [None]
  - Photopsia [None]

NARRATIVE: CASE EVENT DATE: 20190316
